FAERS Safety Report 5485044-3 (Version None)
Quarter: 2007Q4

REPORT INFORMATION
  Report Type: 
  Country: None (occurrence: None)
  Receive Date: 20071015
  Receipt Date: 20071004
  Transmission Date: 20080405
  Serious: Yes (Hospitalization)
  Sender: FDA-Public Use
  Company Number: PHBS2007JP07133

PATIENT
  Age: 61 Year
  Sex: Male
  Weight: 79 kg

DRUGS (8)
  1. BISOPROLOL FUMARATE [Concomitant]
     Dosage: 10 MG, UNK
     Route: 048
     Dates: start: 20070117
  2. AMLODIPINE [Concomitant]
     Dosage: 10 MG, UNK
     Route: 048
     Dates: start: 20070117
  3. DOXAZOSIN MESYLATE [Concomitant]
     Dosage: 4 MG, UNK
     Route: 048
     Dates: start: 20070117
  4. LASIX [Concomitant]
     Dosage: 20 MG, UNK
     Route: 048
     Dates: start: 20070117, end: 20070209
  5. FAMOTIDINE [Concomitant]
     Dosage: 20 MG, UNK
     Route: 048
     Dates: start: 20070117, end: 20070209
  6. MAGLAX [Concomitant]
     Dosage: 1 G, UNK
     Route: 048
     Dates: start: 20070117, end: 20070205
  7. DIOVAN [Suspect]
     Indication: HYPERTENSION
     Dosage: 80 MG/DAY
     Route: 048
     Dates: start: 20070117, end: 20070119
  8. DIOVAN [Suspect]
     Dosage: 160 MG/DAY
     Dates: start: 20070120, end: 20070125

REACTIONS (10)
  - BLOOD CREATINE PHOSPHOKINASE INCREASED [None]
  - BLOOD CREATININE INCREASED [None]
  - MALAISE [None]
  - MOVEMENT DISORDER [None]
  - MUSCLE DISORDER [None]
  - MYOGLOBIN BLOOD INCREASED [None]
  - PAIN IN EXTREMITY [None]
  - PURPURA [None]
  - RHABDOMYOLYSIS [None]
  - SKIN EXFOLIATION [None]
